FAERS Safety Report 8238501-0 (Version None)
Quarter: 2012Q1

REPORT INFORMATION
  Report Type: 
  Country: None (occurrence: None)
  Receive Date: 20120327
  Receipt Date: 20120321
  Transmission Date: 20120608
  Serious: Yes (Hospitalization, Other)
  Sender: FDA-Public Use
  Company Number: SE-PFIZER INC-2012073064

PATIENT
  Age: 16 Year
  Sex: Female

DRUGS (1)
  1. ZIPRASIDONE HYDROCHLORIDE [Suspect]
     Dosage: UNK
     Dates: end: 20120201

REACTIONS (2)
  - DYSTONIA [None]
  - NERVOUS SYSTEM DISORDER [None]
